FAERS Safety Report 5711047-7 (Version None)
Quarter: 2008Q2

REPORT INFORMATION
  Report Type: 
  Country: None (occurrence: None)
  Receive Date: 20080421
  Receipt Date: 20080413
  Transmission Date: 20081010
  Serious: Yes (Other)
  Sender: FDA-Public Use
  Company Number: US-ROCHE-558473

PATIENT
  Sex: Female

DRUGS (2)
  1. PEG-INTERFERON A-2A (RO 25-8310) [Suspect]
     Dosage: PRE FILLED SYRINGE; PATIENT IS IN WEEK 19
     Route: 065
     Dates: start: 20071208
  2. RIBAVIRIN [Suspect]
     Dosage: PATIENT IS IN WEEK 19
     Route: 065
     Dates: start: 20071208

REACTIONS (2)
  - OVARIAN CYST [None]
  - PANCREATITIS [None]
